FAERS Safety Report 4686974-2 (Version None)
Quarter: 2005Q2

REPORT INFORMATION
  Report Type: 
  Country: None (occurrence: None)
  Receive Date: 20050608
  Receipt Date: 20050524
  Transmission Date: 20051028
  Serious: Yes (Other)
  Sender: FDA-Public Use
  Company Number: US137012

PATIENT
  Age: 27 Year
  Sex: Female

DRUGS (1)
  1. ENBREL [Suspect]
     Indication: POLYARTHRITIS
     Dosage: 25 MG, 2 IN 1 WEEKS

REACTIONS (1)
  - LUPUS-LIKE SYNDROME [None]
